FAERS Safety Report 14840755 (Version 1)
Quarter: 2018Q2

REPORT INFORMATION
  Report Type: Spontaneous
  Country: US (occurrence: US)
  Receive Date: 20180503
  Receipt Date: 20180503
  Transmission Date: 20180711
  Serious: No
  Sender: FDA-Public Use
  Company Number: US-PFIZER INC-2018176236

PATIENT
  Age: 63 Year
  Sex: Female

DRUGS (1)
  1. XELJANZ XR [Suspect]
     Active Substance: TOFACITINIB CITRATE
     Dosage: 11 MG, 1X/DAY
     Route: 048

REACTIONS (10)
  - Dyspnoea [Recovering/Resolving]
  - Photosensitivity reaction [Recovering/Resolving]
  - Complement factor C3 decreased [Recovering/Resolving]
  - Pain [Recovering/Resolving]
  - Dry mouth [Recovering/Resolving]
  - Antinuclear antibody positive [Recovering/Resolving]
  - Blister [Recovering/Resolving]
  - Antinuclear antibody [Recovering/Resolving]
  - Complement factor C4 decreased [Recovering/Resolving]
  - Skin discolouration [Recovering/Resolving]
